FAERS Safety Report 4924045-8 (Version None)
Quarter: 2006Q1

REPORT INFORMATION
  Report Type: 
  Country: None (occurrence: None)
  Receive Date: 20060227
  Receipt Date: 20040507
  Transmission Date: 20060701
  Serious: No
  Sender: FDA-Public Use
  Company Number: US-GLAXOSMITHKLINE-A0509996A

PATIENT
  Age: 39 Year
  Sex: Female

DRUGS (3)
  1. WELLBUTRIN XL [Suspect]
     Indication: DEPRESSION
     Dosage: 300MG PER DAY
     Route: 048
  2. SYNTHROID [Concomitant]
  3. EFFEXOR [Concomitant]

REACTIONS (3)
  - FEELING JITTERY [None]
  - TINNITUS [None]
  - WRONG TECHNIQUE IN DRUG USAGE PROCESS [None]
